FAERS Safety Report 11004312 (Version 1)
Quarter: 2015Q2

REPORT INFORMATION
  Report Type: Spontaneous
  Country: CA (occurrence: None)
  Receive Date: 20150407
  Receipt Date: 20150407
  Transmission Date: 20150821
  Serious: Yes (Hospitalization)
  Sender: FDA-Public Use
  Company Number: 2015JUB00091

PATIENT
  Age: 58 Year
  Sex: Male

DRUGS (3)
  1. ETHANOL (ETHANOL) [Suspect]
     Active Substance: ALCOHOL
     Route: 048
  2. LORAZEPAM (LORAZEPAM) [Suspect]
     Active Substance: LORAZEPAM
     Route: 048
  3. CARBAMAZEPINE (CARBAMAZEPINE) UNKNOWN [Suspect]
     Active Substance: CARBAMAZEPINE
     Route: 048

REACTIONS (8)
  - Haemodialysis [None]
  - Ileus [None]
  - Overdose [None]
  - Seizure [None]
  - Stupor [None]
  - Neurotoxicity [None]
  - Toxicity to various agents [None]
  - Thrombocytopenia [None]
